FAERS Safety Report 9349330 (Version 2)
Quarter: 2013Q3

REPORT INFORMATION
  Report Type: Spontaneous
  Country: JP (occurrence: JP)
  Receive Date: 20130614
  Receipt Date: 20130708
  Transmission Date: 20140515
  Serious: Yes (Other)
  Sender: FDA-Public Use
  Company Number: JP-BAYER-2013-072265

PATIENT
  Age: 68 Year
  Sex: Male
  Weight: 68 kg

DRUGS (7)
  1. STIVARGA [Suspect]
     Indication: COLORECTAL CANCER
     Dosage: 80 MG, QD
     Route: 048
     Dates: start: 20130601, end: 20130607
  2. MAGMITT [Concomitant]
     Indication: CONSTIPATION
     Dosage: DAILY DOSE 1500 MG
     Route: 048
     Dates: start: 20110906
  3. PURSENNID [Concomitant]
     Indication: CONSTIPATION
     Dosage: DAILY DOSE 2 DF
     Route: 048
     Dates: start: 20110906
  4. PARIET [Concomitant]
     Indication: GASTRIC ULCER
     Dosage: DAILY DOSE 10 MG
     Route: 048
     Dates: start: 20111116
  5. ALLEGRA [Concomitant]
     Indication: PARONYCHIA
     Dosage: DAILY DOSE 2 DF
     Route: 048
     Dates: start: 20121107, end: 20130614
  6. MINOMYCIN [Concomitant]
     Indication: PARONYCHIA
     Dosage: DAILY DOSE 100 MG
     Route: 048
     Dates: start: 20121107, end: 20130614
  7. PROMAC [POLAPREZINC] [Concomitant]
     Indication: ZINC DEFICIENCY
     Dosage: DAILY DOSE 2 DF
     Route: 048
     Dates: start: 20130305, end: 20130614

REACTIONS (2)
  - Hyperbilirubinaemia [Recovered/Resolved]
  - Blood lactate dehydrogenase increased [Recovered/Resolved]
